FAERS Safety Report 15419035 (Version 1)
Quarter: 2018Q3

REPORT INFORMATION
  Report Type: Spontaneous
  Country: BR (occurrence: BR)
  Receive Date: 20180924
  Receipt Date: 20180924
  Transmission Date: 20181010
  Serious: Yes (Hospitalization)
  Sender: FDA-Public Use
  Company Number: BR-UCBSA-2018042081

PATIENT
  Age: 63 Year
  Sex: Male
  Weight: 75 kg

DRUGS (8)
  1. KEPPRA [Suspect]
     Active Substance: LEVETIRACETAM
     Dosage: 1000 MG, 2X/DAY (BID) ((750 MG AND 1 TABLET OF 250 MG)
     Route: 048
     Dates: start: 201809
  2. OXCARBAZEPINE. [Concomitant]
     Active Substance: OXCARBAZEPINE
     Indication: SEIZURE
     Dosage: 900 MG, TOTAL
     Route: 048
     Dates: start: 20180911
  3. TORVAL [Concomitant]
     Active Substance: VALPROIC ACID
     Indication: SEIZURE
     Dosage: UNK
     Dates: start: 201804, end: 201806
  4. KEPPRA [Suspect]
     Active Substance: LEVETIRACETAM
     Indication: OFF LABEL USE
     Dosage: 750 MG, 2X/DAY (BID)
     Route: 048
     Dates: start: 2018, end: 2018
  5. KEPPRA [Suspect]
     Active Substance: LEVETIRACETAM
     Dosage: 1000 MG, 2X/DAY (BID) ((750 MG AND 1 TABLET OF 250 MG)
     Route: 048
     Dates: start: 201809
  6. AAS [Concomitant]
     Active Substance: ASPIRIN
     Indication: CARDIOVASCULAR DISORDER
     Dosage: 100 MG, ONCE DAILY (QD)
     Route: 048
     Dates: start: 201702
  7. PANTOPRAZOLE [Concomitant]
     Active Substance: PANTOPRAZOLE
     Indication: GASTRIC DISORDER
     Dosage: 20 MG, ONCE DAILY (QD)
     Route: 048
     Dates: start: 201702
  8. KEPPRA [Suspect]
     Active Substance: LEVETIRACETAM
     Indication: CEREBROVASCULAR ACCIDENT
     Dosage: 250 MG, 2X/DAY (BID)
     Route: 048
     Dates: start: 20170221, end: 2018

REACTIONS (6)
  - Seizure [Recovered/Resolved with Sequelae]
  - Off label use [Unknown]
  - Anxiety [Unknown]
  - Aggression [Unknown]
  - Irritability [Unknown]
  - Dyskinesia [Unknown]

NARRATIVE: CASE EVENT DATE: 201702
